FAERS Safety Report 24054164 (Version 3)
Quarter: 2024Q3

REPORT INFORMATION
  Report Type: Spontaneous
  Country: US (occurrence: US)
  Receive Date: 20240705
  Receipt Date: 20240822
  Transmission Date: 20241017
  Serious: No
  Sender: IPSEN
  Company Number: US-IPSEN Group, Research and Development-2024-13293

PATIENT
  Age: 68 Year
  Sex: Female
  Weight: 52.61 kg

DRUGS (4)
  1. TAZVERIK [Suspect]
     Active Substance: TAZEMETOSTAT HYDROBROMIDE
     Indication: Follicular lymphoma stage I
     Dosage: 800 MG TWICE PER DAY
     Route: 048
  2. LUTEINE [Concomitant]
  3. VALACYCLOVIR [Concomitant]
     Active Substance: VALACYCLOVIR HYDROCHLORIDE
  4. EYLEA INTRAVITREAL SOLUTION [Concomitant]
     Dosage: INTRAVITREAL SOLUTION

REACTIONS (6)
  - Nausea [Recovered/Resolved]
  - Migraine [Recovered/Resolved]
  - Vitreous floaters [Not Recovered/Not Resolved]
  - Depressed mood [Recovered/Resolved]
  - Fatigue [Not Recovered/Not Resolved]
  - Dizziness [Not Recovered/Not Resolved]
